FAERS Safety Report 17705241 (Version 2)
Quarter: 2020Q2

REPORT INFORMATION
  Report Type: Spontaneous
  Country: US (occurrence: US)
  Receive Date: 20200424
  Receipt Date: 20200522
  Transmission Date: 20200714
  Serious: No
  Sender: FDA-Public Use
  Company Number: US-PFIZER INC-2020164363

PATIENT
  Age: 47 Year
  Sex: Female
  Weight: 106.58 kg

DRUGS (2)
  1. IBRANCE [Suspect]
     Active Substance: PALBOCICLIB
     Indication: BREAST CANCER
     Dosage: 125 MG, CYCLIC (DAILY 21 DAYS ON , THEN 7 DAYS OFF)
     Route: 048
     Dates: start: 20200103, end: 2020
  2. IBRANCE [Suspect]
     Active Substance: PALBOCICLIB
     Dosage: 125 MG, CYCLIC (DAILY 21 DAYS ON , THEN 7 DAYS OFF)
     Route: 048
     Dates: start: 20200420, end: 2020

REACTIONS (5)
  - Nausea [Unknown]
  - White blood cell count decreased [Unknown]
  - Haemoglobin abnormal [Unknown]
  - White blood cell count abnormal [Unknown]
  - Diarrhoea [Unknown]

NARRATIVE: CASE EVENT DATE: 2020
